FAERS Safety Report 8117140-6 (Version None)
Quarter: 2012Q1

REPORT INFORMATION
  Report Type: 
  Country: None (occurrence: None)
  Receive Date: 20120206
  Receipt Date: 20120127
  Transmission Date: 20120608
  Serious: Yes (Hospitalization)
  Sender: FDA-Public Use
  Company Number: FR-ASTRAZENECA-2012SE06535

PATIENT
  Age: 24209 Day
  Sex: Male

DRUGS (11)
  1. CARBOPLATIN [Suspect]
     Dosage: IN COMBINATION WITH ETHYOL
     Dates: start: 20080701, end: 20080901
  2. TICLID [Concomitant]
  3. ERBITUX [Suspect]
     Indication: HYPOPHARYNGEAL CANCER STAGE II
     Dosage: 60, ONCE A WEEK
     Route: 042
     Dates: start: 20101007, end: 20101105
  4. NEXIUM [Concomitant]
  5. LERCANIDIPINE [Concomitant]
  6. CARBOPLATIN [Suspect]
     Indication: HYPOPHARYNGEAL CANCER STAGE II
     Dosage: 3 COURSES, IN COMBINATION WITH TAXOL
  7. PROPRANOLOL [Concomitant]
  8. KAYEXALATE [Concomitant]
  9. ATACAND [Suspect]
     Indication: HYPERTENSION
     Route: 048
     Dates: end: 20101109
  10. CARBOPLATIN [Suspect]
     Dosage: 80, ONCE A WEEK
     Route: 042
     Dates: start: 20101007, end: 20101105
  11. CRESTOR [Concomitant]

REACTIONS (5)
  - PANCYTOPENIA [None]
  - RENAL FAILURE ACUTE [None]
  - VOMITING [None]
  - HYPOVOLAEMIC SHOCK [None]
  - DIARRHOEA [None]
